FAERS Safety Report 8339384-0 (Version None)
Quarter: 2012Q2

REPORT INFORMATION
  Report Type: 
  Country: None (occurrence: None)
  Receive Date: 20120507
  Receipt Date: 20120427
  Transmission Date: 20120825
  Serious: Yes (Other)
  Sender: FDA-Public Use
  Company Number: US-BAYER-2011-075150

PATIENT
  Age: 28 Year
  Sex: Female

DRUGS (5)
  1. DROSPIRENONE AND ETHINYL ESTRADIOL [Suspect]
     Dosage: UNK
     Dates: start: 20030101, end: 20100101
  2. NASONEX [Concomitant]
     Dosage: UNK
     Dates: start: 20040101
  3. ZYRTEC [Concomitant]
     Dosage: UNK
     Dates: start: 20040101
  4. YASMIN [Suspect]
     Dosage: UNK
     Dates: start: 20030101, end: 20100101
  5. ATENOLOL [Concomitant]
     Dosage: UNK
     Dates: start: 20030101, end: 20080101

REACTIONS (3)
  - GALLBLADDER INJURY [None]
  - PALPITATIONS [None]
  - ARRHYTHMIA [None]
